FAERS Safety Report 21550595 (Version 7)
Quarter: 2024Q3

REPORT INFORMATION
  Report Type: Spontaneous
  Country: US (occurrence: US)
  Receive Date: 20221103
  Receipt Date: 20240723
  Transmission Date: 20241017
  Serious: Yes (Other)
  Sender: MYOVANT SCIENCES
  Company Number: US-MYOVANT SCIENCES GMBH-2022MYSCI1000049

PATIENT
  Sex: Male

DRUGS (10)
  1. ORGOVYX [Suspect]
     Active Substance: RELUGOLIX
     Indication: Prostate cancer
     Dosage: 360 MILLIGRAM, ONE TIME DOSE
     Route: 048
     Dates: start: 20220809, end: 20220809
  2. ORGOVYX [Suspect]
     Active Substance: RELUGOLIX
     Dosage: 120 MILLIGRAM, QD
     Route: 048
     Dates: start: 20220810
  3. ORGOVYX [Suspect]
     Active Substance: RELUGOLIX
     Dosage: UNK
  4. ORGOVYX [Suspect]
     Active Substance: RELUGOLIX
     Dosage: UNK
  5. ORGOVYX [Suspect]
     Active Substance: RELUGOLIX
     Dosage: UNK
  6. ORGOVYX [Suspect]
     Active Substance: RELUGOLIX
     Dosage: UNK
  7. ORGOVYX [Suspect]
     Active Substance: RELUGOLIX
     Dosage: UNK
  8. ORGOVYX [Suspect]
     Active Substance: RELUGOLIX
     Dosage: UNK
  9. ORGOVYX [Suspect]
     Active Substance: RELUGOLIX
     Dosage: UNK
  10. VENLAFAXINE [Suspect]
     Active Substance: VENLAFAXINE HYDROCHLORIDE
     Indication: Mood swings
     Dosage: UNK
     Route: 065

REACTIONS (17)
  - Intestinal haemorrhage [Not Recovered/Not Resolved]
  - Urinary bladder haemorrhage [Unknown]
  - Anger [Not Recovered/Not Resolved]
  - Somnolence [Not Recovered/Not Resolved]
  - Blood iron decreased [Not Recovered/Not Resolved]
  - Glycosylated haemoglobin increased [Unknown]
  - Dry mouth [Unknown]
  - Nausea [Unknown]
  - Mood swings [Recovering/Resolving]
  - Hot flush [Not Recovered/Not Resolved]
  - Fatigue [Not Recovered/Not Resolved]
  - Arthralgia [Unknown]
  - Haemoglobin decreased [Unknown]
  - Bladder spasm [Not Recovered/Not Resolved]
  - Flatulence [Unknown]
  - Ear disorder [Recovered/Resolved]
  - Product dose omission issue [Recovered/Resolved]
